FAERS Safety Report 14810427 (Version 2)
Quarter: 2018Q3

REPORT INFORMATION
  Report Type: Report from Study
  Country: US (occurrence: US)
  Receive Date: 20180425
  Receipt Date: 20180719
  Transmission Date: 20181010
  Serious: No
  Sender: FDA-Public Use
  Company Number: US-AMGEN-USASL2018030460

PATIENT
  Age: 61 Year
  Sex: Female

DRUGS (1)
  1. REPATHA [Suspect]
     Active Substance: EVOLOCUMAB
     Indication: CARDIAC DISORDER
     Dosage: 140 MG, Q2WK
     Route: 058

REACTIONS (5)
  - Headache [Recovered/Resolved]
  - Mobility decreased [Recovered/Resolved]
  - Tinnitus [Unknown]
  - Lip swelling [Unknown]
  - Swollen tongue [Unknown]
